FAERS Safety Report 5845084-9 (Version None)
Quarter: 2008Q3

REPORT INFORMATION
  Report Type: 
  Country: None (occurrence: None)
  Receive Date: 20080731
  Receipt Date: 20080420
  Transmission Date: 20090109
  Serious: No
  Sender: FDA-Public Use
  Company Number: US200804005199

PATIENT
  Age: 55 Year
  Sex: Male
  Weight: 86.2 kg

DRUGS (3)
  1. BYETTA [Suspect]
     Indication: INSULIN-REQUIRING TYPE 2 DIABETES MELLITUS
     Dosage: 10 UG, 2/D, SUBCUTANEOUS
     Route: 058
     Dates: start: 20080405
  2. LANTUS [Concomitant]
  3. GLYBURIDE [Concomitant]

REACTIONS (9)
  - BLOOD GLUCOSE DECREASED [None]
  - CONFUSIONAL STATE [None]
  - DECREASED APPETITE [None]
  - HYPERHIDROSIS [None]
  - IRRITABILITY [None]
  - PALPITATIONS [None]
  - TREMOR [None]
  - VERTIGO [None]
  - WEIGHT DECREASED [None]
